FAERS Safety Report 6558565-X (Version None)
Quarter: 2010Q1

REPORT INFORMATION
  Report Type: 
  Country: None (occurrence: None)
  Receive Date: 20100129
  Receipt Date: 20090511
  Transmission Date: 20100710
  Serious: No
  Sender: FDA-Public Use
  Company Number: A0777585A

PATIENT
  Sex: Female

DRUGS (4)
  1. MEPRON [Suspect]
     Indication: LYME DISEASE
     Dosage: 1TSP TWICE PER DAY
     Route: 048
     Dates: start: 20090325
  2. TRAMADOL [Concomitant]
  3. CEFTIN [Concomitant]
  4. AZITHROMYCIN [Concomitant]

REACTIONS (1)
  - ABDOMINAL DISTENSION [None]
